FAERS Safety Report 8334489-2 (Version None)
Quarter: 2012Q2

REPORT INFORMATION
  Report Type: 
  Country: None (occurrence: None)
  Receive Date: 20120503
  Receipt Date: 20110329
  Transmission Date: 20120825
  Serious: No
  Sender: FDA-Public Use
  Company Number: US-TEVA-2011001525

PATIENT
  Sex: Female
  Weight: 113.5 kg

DRUGS (14)
  1. ZETIA [Concomitant]
  2. FLEXERIL [Concomitant]
  3. FLONASE [Concomitant]
  4. ALBUTEROL [Concomitant]
  5. SINGULAIR [Concomitant]
  6. ALLEGRA [Concomitant]
  7. LYRICA [Concomitant]
  8. RELAFEN [Concomitant]
  9. VALIUM [Concomitant]
  10. VISTARIL [Concomitant]
  11. NUVIGIL [Suspect]
     Indication: HYPERSOMNIA
     Dosage: 150 MILLIGRAM;
     Route: 048
  12. ADVAIR DISKUS 100/50 [Concomitant]
  13. SYNTHROID [Concomitant]
  14. PRILOSEC [Concomitant]

REACTIONS (4)
  - INTENTIONAL DRUG MISUSE [None]
  - DISTURBANCE IN ATTENTION [None]
  - GAIT DISTURBANCE [None]
  - INSOMNIA [None]
